FAERS Safety Report 9154564 (Version 1)
Quarter: 2013Q1

REPORT INFORMATION
  Report Type: Spontaneous
  Country: US (occurrence: US)
  Receive Date: 20130311
  Receipt Date: 20130311
  Transmission Date: 20140127
  Serious: No
  Sender: FDA-Public Use
  Company Number: US-ASTRAZENECA-2013SE11415

PATIENT
  Age: 45 Year
  Sex: Female

DRUGS (2)
  1. METOPROLOL [Suspect]
     Route: 048
  2. SEROQUEL XR [Suspect]
     Route: 048

REACTIONS (2)
  - Asthma [Unknown]
  - Bipolar disorder [Unknown]
